FAERS Safety Report 23970875 (Version 1)
Quarter: 2024Q2

REPORT INFORMATION
  Report Type: Spontaneous
  Country: US (occurrence: None)
  Receive Date: 20240612
  Receipt Date: 20240612
  Transmission Date: 20240716
  Serious: Yes (Hospitalization)
  Sender: FDA-Public Use
  Company Number: None

PATIENT
  Age: 62 Year
  Sex: Female

DRUGS (17)
  1. AMBRISENTAN [Suspect]
     Active Substance: AMBRISENTAN
     Indication: Pulmonary hypertension
     Dosage: 10MG QD ORAL
     Route: 048
     Dates: start: 20221212
  2. TADALAFIL [Concomitant]
     Active Substance: TADALAFIL
  3. FUROSEMIDE [Concomitant]
  4. FERROUS SULFATE [Concomitant]
  5. HYDROXYCHLOROQUINE [Concomitant]
  6. ATORVASTATIN [Concomitant]
  7. HUMULIN 70/30 [Concomitant]
     Active Substance: INSULIN HUMAN
  8. DOCUSATE SODIUM [Concomitant]
  9. MIRALAX [Concomitant]
  10. TYLENOL [Concomitant]
     Active Substance: ACETAMINOPHEN
  11. MAGNESIUM CITRATE [Concomitant]
  12. OMEPRAZOLE [Concomitant]
  13. VICTOZA [Concomitant]
  14. POTASSIUM CHLORIDE [Concomitant]
  15. GABAPENTIN [Concomitant]
     Active Substance: GABAPENTIN
  16. Oxygen Intranasal [Concomitant]
  17. Aspirin [Concomitant]

REACTIONS (4)
  - Biopsy liver [None]
  - Abdominal pain upper [None]
  - Post procedural haemorrhage [None]
  - Haemothorax [None]

NARRATIVE: CASE EVENT DATE: 20240604
